FAERS Safety Report 5634857-3 (Version None)
Quarter: 2008Q1

REPORT INFORMATION
  Report Type: 
  Country: None (occurrence: None)
  Receive Date: 20080222
  Receipt Date: 20080219
  Transmission Date: 20080703
  Serious: No
  Sender: FDA-Public Use
  Company Number: DE-BAXTER-2008BH000675

PATIENT
  Age: 20 Year
  Sex: Female
  Weight: 60 kg

DRUGS (39)
  1. GAMMAGARD [Suspect]
     Indication: ASTHMA
     Dosage: DOSE UNIT:UNKNOWN
     Route: 042
     Dates: start: 19910408, end: 19931202
  2. GAMMAGARD [Suspect]
     Indication: INFECTION PROPHYLAXIS
     Dosage: DOSE UNIT:UNKNOWN
     Route: 042
     Dates: start: 19910408, end: 19931202
  3. GAMMAGARD [Suspect]
     Dosage: DOSE UNIT:UNKNOWN
     Route: 042
     Dates: start: 19910408, end: 19931202
  4. GAMMAGARD [Suspect]
     Dosage: DOSE UNIT:UNKNOWN
     Route: 042
     Dates: start: 19910408, end: 19931202
  5. GAMMAGARD [Suspect]
     Dosage: DOSE UNIT:UNKNOWN
     Route: 042
     Dates: start: 19910408, end: 19931202
  6. GAMMAGARD [Suspect]
     Dosage: DOSE UNIT:UNKNOWN
     Route: 042
     Dates: start: 19910408, end: 19931202
  7. GAMMAGARD [Suspect]
     Dosage: DOSE UNIT:UNKNOWN
     Route: 042
     Dates: start: 19910408, end: 19931202
  8. GAMMAGARD [Suspect]
     Dosage: DOSE UNIT:UNKNOWN
     Route: 042
     Dates: start: 19910408, end: 19931202
  9. GAMMAGARD [Suspect]
     Dosage: DOSE UNIT:UNKNOWN
     Route: 042
     Dates: start: 19910408, end: 19931202
  10. GAMMAGARD [Suspect]
     Dosage: DOSE UNIT:UNKNOWN
     Route: 042
     Dates: start: 19910408, end: 19931202
  11. GAMMAGARD [Suspect]
     Dosage: DOSE UNIT:UNKNOWN
     Route: 042
     Dates: start: 19910408, end: 19931202
  12. GAMMAGARD [Suspect]
     Dosage: DOSE UNIT:UNKNOWN
     Route: 042
     Dates: start: 19910408, end: 19931202
  13. GAMMAGARD [Suspect]
     Dosage: DOSE UNIT:UNKNOWN
     Route: 042
     Dates: start: 19910408, end: 19931202
  14. GAMMAGARD [Suspect]
     Dosage: DOSE UNIT:UNKNOWN
     Route: 042
     Dates: start: 19910408, end: 19931202
  15. GAMMAGARD [Suspect]
     Dosage: DOSE UNIT:UNKNOWN
     Route: 042
     Dates: start: 19910408, end: 19931202
  16. GAMMAGARD [Suspect]
     Dosage: DOSE UNIT:UNKNOWN
     Route: 042
     Dates: start: 19910408, end: 19931202
  17. GAMMAGARD [Suspect]
     Dosage: DOSE UNIT:UNKNOWN
     Route: 042
     Dates: start: 19910408, end: 19931202
  18. GAMMAGARD [Suspect]
     Dosage: DOSE UNIT:UNKNOWN
     Route: 042
     Dates: start: 19910408, end: 19931202
  19. GAMMAGARD [Suspect]
     Dosage: DOSE UNIT:UNKNOWN
     Route: 042
     Dates: start: 19910408, end: 19931202
  20. GAMMAGARD [Suspect]
     Dosage: DOSE UNIT:UNKNOWN
     Route: 042
     Dates: start: 19910408, end: 19931202
  21. GAMMAGARD [Suspect]
     Dosage: DOSE UNIT:UNKNOWN
     Route: 042
     Dates: start: 19910408, end: 19931202
  22. GAMMAGARD [Suspect]
     Dosage: DOSE UNIT:UNKNOWN
     Route: 042
     Dates: start: 19910408, end: 19931202
  23. GAMMAGARD [Suspect]
     Dosage: DOSE UNIT:UNKNOWN
     Route: 042
     Dates: start: 19910408, end: 19931202
  24. GAMMAGARD [Suspect]
     Dosage: DOSE UNIT:UNKNOWN
     Route: 042
     Dates: start: 19910408, end: 19931202
  25. GAMMAGARD [Suspect]
     Dosage: DOSE UNIT:UNKNOWN
     Route: 042
     Dates: start: 19910408, end: 19931202
  26. GAMMAGARD [Suspect]
     Dosage: DOSE UNIT:UNKNOWN
     Route: 042
     Dates: start: 19910408, end: 19931202
  27. GAMMAGARD [Suspect]
     Dosage: DOSE UNIT:UNKNOWN
     Route: 042
     Dates: start: 19910408, end: 19931202
  28. GAMMAGARD [Suspect]
     Dosage: DOSE UNIT:UNKNOWN
     Route: 042
     Dates: start: 19910408, end: 19931202
  29. GAMMAGARD [Suspect]
     Dosage: DOSE UNIT:UNKNOWN
     Route: 042
     Dates: start: 19910408, end: 19931202
  30. GAMMAGARD [Suspect]
     Dosage: DOSE UNIT:UNKNOWN
     Route: 042
     Dates: start: 19910408, end: 19931202
  31. GAMMAGARD [Suspect]
     Dosage: DOSE UNIT:UNKNOWN
     Route: 042
     Dates: start: 19910408, end: 19931202
  32. GAMMAGARD [Suspect]
     Dosage: DOSE UNIT:UNKNOWN
     Route: 042
     Dates: start: 19910408, end: 19931202
  33. GAMMAGARD [Suspect]
     Dosage: DOSE UNIT:UNKNOWN
     Route: 042
     Dates: start: 19910408, end: 19931202
  34. GAMMAGARD [Suspect]
     Dosage: DOSE UNIT:UNKNOWN
     Route: 042
     Dates: start: 19910408, end: 19931202
  35. VARITECT [Suspect]
     Indication: DRUG USE FOR UNKNOWN INDICATION
     Route: 042
     Dates: start: 19931204, end: 19931204
  36. VARITECT [Suspect]
     Route: 042
     Dates: start: 19931204, end: 19931204
  37. VARITECT [Suspect]
     Route: 042
     Dates: start: 19931204, end: 19931204
  38. PREDNISOLONE [Concomitant]
     Route: 048
  39. THEOPHYLLIN RETARD-RATIOPHARM [Concomitant]
     Indication: ASTHMA
     Route: 048

REACTIONS (1)
  - HEPATITIS C [None]
